FAERS Safety Report 25721409 (Version 1)
Quarter: 2025Q3

REPORT INFORMATION
  Report Type: Spontaneous
  Country: US (occurrence: None)
  Receive Date: 20250823
  Receipt Date: 20250823
  Transmission Date: 20251021
  Serious: Yes (Disabling)
  Sender: FDA-CTU
  Company Number: None

PATIENT
  Age: 37 Year
  Sex: Male

DRUGS (1)
  1. FINASTERIDE [Suspect]
     Active Substance: FINASTERIDE
     Indication: Alopecia
     Dates: start: 20160101, end: 20240901

REACTIONS (8)
  - Libido disorder [None]
  - Mental disorder [None]
  - General physical condition abnormal [None]
  - Erectile dysfunction [None]
  - Anxiety [None]
  - Muscle atrophy [None]
  - Skin laxity [None]
  - Physical product label issue [None]

NARRATIVE: CASE EVENT DATE: 20241126
